FAERS Safety Report 10622430 (Version 1)
Quarter: 2014Q4

REPORT INFORMATION
  Report Type: Spontaneous
  Country: TR (occurrence: TR)
  Receive Date: 20141203
  Receipt Date: 20141203
  Transmission Date: 20150529
  Serious: Yes (Life-Threatening, Other)
  Sender: FDA-Public Use
  Company Number: TR-ELI_LILLY_AND_COMPANY-TR201412000221

PATIENT
  Age: 42 Year
  Sex: Female

DRUGS (1)
  1. OLANZAPINE. [Suspect]
     Active Substance: OLANZAPINE
     Indication: BIPOLAR DISORDER
     Dosage: 10 MG, QD
     Route: 065

REACTIONS (7)
  - Cerebral infarction [Unknown]
  - Myocardial infarction [Unknown]
  - Neuroleptic malignant syndrome [Recovering/Resolving]
  - Emotional disorder [Unknown]
  - Depressed mood [Unknown]
  - Personality disorder [Unknown]
  - Amnesia [Unknown]
